FAERS Safety Report 6718279-X (Version None)
Quarter: 2010Q2

REPORT INFORMATION
  Report Type: 
  Country: None (occurrence: None)
  Receive Date: 20100510
  Receipt Date: 20100428
  Transmission Date: 20101027
  Serious: Yes (Death, Other)
  Sender: FDA-Public Use
  Company Number: IE-GENZYME-CLOF-1000914

PATIENT
  Age: 79 Year
  Sex: Female

DRUGS (1)
  1. EVOLTRA [Suspect]
     Indication: ACUTE MYELOID LEUKAEMIA
     Dosage: 20 MG/M2, QDX5
     Route: 065

REACTIONS (5)
  - ALLOIMMUNISATION [None]
  - PULMONARY HAEMORRHAGE [None]
  - REFRACTORINESS TO PLATELET TRANSFUSION [None]
  - RESPIRATORY FAILURE [None]
  - THROMBOCYTOPENIA [None]
